FAERS Safety Report 7483961-6 (Version None)
Quarter: 2011Q2

REPORT INFORMATION
  Report Type: 
  Country: None (occurrence: None)
  Receive Date: 20110517
  Receipt Date: 20110511
  Transmission Date: 20111010
  Serious: Yes (Other)
  Sender: FDA-Public Use
  Company Number: BR-SANOFI-AVENTIS-2011SA029369

PATIENT
  Age: 76 Year
  Sex: Female

DRUGS (1)
  1. ARAVA [Suspect]
     Route: 065

REACTIONS (2)
  - TRANSAMINASES INCREASED [None]
  - HEPATITIS [None]
